FAERS Safety Report 19951501 (Version 1)
Quarter: 2021Q4

REPORT INFORMATION
  Report Type: Spontaneous
  Country: US (occurrence: US)
  Receive Date: 20211014
  Receipt Date: 20211014
  Transmission Date: 20220304
  Serious: No
  Sender: FDA-Public Use
  Company Number: 2021A756380

PATIENT
  Sex: Male

DRUGS (1)
  1. BRILINTA [Suspect]
     Active Substance: TICAGRELOR
     Indication: Percutaneous coronary intervention
     Route: 048

REACTIONS (1)
  - Incorrect dose administered [Unknown]
